FAERS Safety Report 24048614 (Version 1)
Quarter: 2024Q3

REPORT INFORMATION
  Report Type: Spontaneous
  Country: JP (occurrence: JP)
  Receive Date: 20240704
  Receipt Date: 20240704
  Transmission Date: 20241017
  Serious: Yes (Hospitalization, Other)
  Sender: TWI PHARMACEUTICALS
  Company Number: JP-TWI PHARMACEUTICAL, INC-2024SCTW000127

PATIENT

DRUGS (1)
  1. GUANFACINE HYDROCHLORIDE [Suspect]
     Active Substance: GUANFACINE HYDROCHLORIDE
     Indication: Product used for unknown indication
     Dosage: 18 MILLIGRAM
     Route: 048

REACTIONS (6)
  - Toxicity to various agents [Unknown]
  - Altered state of consciousness [Unknown]
  - Hypertension [Unknown]
  - Bradycardia [Unknown]
  - Overdose [Unknown]
  - Hypotension [Unknown]
